FAERS Safety Report 11462736 (Version 1)
Quarter: 2015Q3

REPORT INFORMATION
  Report Type: Spontaneous
  Country: US (occurrence: US)
  Receive Date: 20150831
  Receipt Date: 20150831
  Transmission Date: 20151125
  Serious: No
  Sender: FDA-Public Use
  Company Number: US-ELI_LILLY_AND_COMPANY-US201101003250

PATIENT
  Sex: Female

DRUGS (2)
  1. LEVOXYL [Concomitant]
     Active Substance: LEVOTHYROXINE SODIUM
     Dosage: 112 UG, DAILY (1/D)
  2. CYMBALTA [Suspect]
     Active Substance: DULOXETINE HYDROCHLORIDE
     Indication: FIBROMYALGIA
     Dosage: 30 MG, DAILY (1/D)
     Dates: start: 201010

REACTIONS (11)
  - Drug effect decreased [Recovered/Resolved]
  - Pain [Unknown]
  - Migraine [Not Recovered/Not Resolved]
  - Depression [Unknown]
  - Hyperhidrosis [Unknown]
  - Dry mouth [Unknown]
  - Insomnia [Unknown]
  - Blood pressure increased [Unknown]
  - Headache [Unknown]
  - Anxiety [Unknown]
  - Heart rate increased [Unknown]
